FAERS Safety Report 6921689-9 (Version None)
Quarter: 2010Q3

REPORT INFORMATION
  Report Type: 
  Country: None (occurrence: None)
  Receive Date: 20100812
  Receipt Date: 20100730
  Transmission Date: 20110219
  Serious: Yes (Other)
  Sender: FDA-Public Use
  Company Number: US-JNJFOC-20100607505

PATIENT
  Sex: Female

DRUGS (2)
  1. CHILDREN'S TYLENOL SUSPENSION [Suspect]
     Route: 048
  2. CHILDREN'S TYLENOL SUSPENSION [Suspect]
     Indication: PYREXIA
     Dosage: STRENGTH IS 160MG/5 ML
     Route: 048

REACTIONS (5)
  - BRONCHITIS [None]
  - DRUG INEFFECTIVE [None]
  - NASAL CONGESTION [None]
  - PRODUCT QUALITY ISSUE [None]
  - RHINITIS [None]
